FAERS Safety Report 5365220-0 (Version None)
Quarter: 2007Q2

REPORT INFORMATION
  Report Type: 
  Country: None (occurrence: None)
  Receive Date: 20070530
  Receipt Date: 20070102
  Transmission Date: 20071010
  Serious: No
  Sender: FDA-Public Use
  Company Number: 2006PV019378

PATIENT
  Age: 55 Year
  Sex: Female
  Weight: 77.1115 kg

DRUGS (12)
  1. BYETTA [Suspect]
     Indication: DIABETES MELLITUS NON-INSULIN-DEPENDENT
     Dosage: 10 MCG; QD; SC; 5 MCG; QD; SC; 5 MCG; BID; SC
     Route: 058
     Dates: start: 20060810
  2. BYETTA [Suspect]
     Indication: DIABETES MELLITUS NON-INSULIN-DEPENDENT
     Dosage: 10 MCG; QD; SC; 5 MCG; QD; SC; 5 MCG; BID; SC
     Route: 058
     Dates: start: 20061201
  3. BYETTA [Suspect]
     Indication: DIABETES MELLITUS NON-INSULIN-DEPENDENT
     Dosage: 10 MCG; QD; SC; 5 MCG; QD; SC; 5 MCG; BID; SC
     Route: 058
     Dates: start: 20061201
  4. LANTUS [Concomitant]
  5. GLUCOPHAGE [Concomitant]
  6. GLYNASE [Concomitant]
  7. AVANDIA [Concomitant]
  8. CALAN [Concomitant]
  9. MONOPRIL [Concomitant]
  10. ATENOLOL [Concomitant]
  11. AGGRENOX [Concomitant]
  12. INSULIN [Concomitant]

REACTIONS (8)
  - ALOPECIA [None]
  - BLOOD GLUCOSE DECREASED [None]
  - CHILLS [None]
  - ERUCTATION [None]
  - NAUSEA [None]
  - TREMOR [None]
  - VOMITING [None]
  - WEIGHT DECREASED [None]
